FAERS Safety Report 16280907 (Version 1)
Quarter: 2019Q2

REPORT INFORMATION
  Report Type: Spontaneous
  Country: US (occurrence: US)
  Receive Date: 20190507
  Receipt Date: 20190507
  Transmission Date: 20190711
  Serious: No
  Sender: FDA-Public Use
  Company Number: US-ASTRAZENECA-2019SE65720

PATIENT
  Age: 82 Year
  Sex: Male

DRUGS (2)
  1. OMEPRAZOLE. [Suspect]
     Active Substance: OMEPRAZOLE
     Route: 048
  2. FASENRA [Suspect]
     Active Substance: BENRALIZUMAB
     Indication: ASTHMA
     Dosage: 30.0MG UNKNOWN
     Route: 058
     Dates: start: 20190409

REACTIONS (4)
  - Anal incontinence [Unknown]
  - Fall [Recovered/Resolved]
  - Tremor [Unknown]
  - Pyrexia [Unknown]

NARRATIVE: CASE EVENT DATE: 20190409
